FAERS Safety Report 24714469 (Version 2)
Quarter: 2025Q1

REPORT INFORMATION
  Report Type: Report from Study
  Country: US (occurrence: US)
  Receive Date: 20241209
  Receipt Date: 20250207
  Transmission Date: 20250409
  Serious: Yes (Other)
  Sender: UCB
  Company Number: US-UCBSA-2024063621

PATIENT
  Sex: Male
  Weight: 78.9 kg

DRUGS (2)
  1. BRIVARACETAM [Suspect]
     Active Substance: BRIVARACETAM
     Indication: Seizure
     Dosage: 100 MILLIGRAM, 1 TABLET 2X/DAY (BID)
     Route: 048
  2. XCOPRI [Suspect]
     Active Substance: CENOBAMATE
     Indication: Seizure
     Dosage: 150 MILLIGRAM, ONCE DAILY (QD)
     Route: 048

REACTIONS (6)
  - Epilepsy [Not Recovered/Not Resolved]
  - Seizure [Unknown]
  - Craniocerebral injury [Unknown]
  - Pyrexia [Unknown]
  - Inability to afford medication [Unknown]
  - Therapy interrupted [Unknown]
